FAERS Safety Report 19657179 (Version 1)
Quarter: 2021Q3

REPORT INFORMATION
  Report Type: Spontaneous
  Country: US (occurrence: US)
  Receive Date: 20210804
  Receipt Date: 20210804
  Transmission Date: 20211014
  Serious: No
  Sender: FDA-Public Use
  Company Number: US-UPSHER-SMITH LABORATORIES, LLC-2021USL00378

PATIENT
  Sex: Female
  Weight: 73.47 kg

DRUGS (2)
  1. MORPHINE [Suspect]
     Active Substance: MORPHINE
     Indication: PAIN
     Dosage: 45 MG, 1X/DAY IN THE MORNING
     Route: 048
     Dates: start: 202104
  2. MORPHINE [Suspect]
     Active Substance: MORPHINE
     Dosage: 60 MG, 1X/DAY IN THE EVENING
     Route: 048
     Dates: start: 202104

REACTIONS (7)
  - Feeling hot [Recovering/Resolving]
  - Vertigo [Recovering/Resolving]
  - Hyperhidrosis [Recovering/Resolving]
  - Night sweats [Recovering/Resolving]
  - Tension [Recovering/Resolving]
  - Nausea [Recovering/Resolving]
  - Withdrawal syndrome [Recovering/Resolving]

NARRATIVE: CASE EVENT DATE: 2021
